FAERS Safety Report 9739679 (Version 2)
Quarter: 2013Q4

REPORT INFORMATION
  Report Type: Spontaneous
  Country: US (occurrence: US)
  Receive Date: 20131209
  Receipt Date: 20131209
  Transmission Date: 20140711
  Serious: Yes (Other)
  Sender: FDA-Public Use
  Company Number: US-ASTELLAS-2013US010703

PATIENT
  Sex: Male

DRUGS (1)
  1. XTANDI [Suspect]
     Indication: PROSTATE CANCER
     Dosage: 160 MG, UID/QD
     Route: 048
     Dates: start: 20130716

REACTIONS (5)
  - Somnolence [Unknown]
  - Musculoskeletal pain [Recovering/Resolving]
  - Dizziness [Unknown]
  - Back pain [Recovering/Resolving]
  - Metastases to bone [Unknown]
